FAERS Safety Report 6671153-X (Version None)
Quarter: 2010Q2

REPORT INFORMATION
  Report Type: 
  Country: None (occurrence: None)
  Receive Date: 20100407
  Receipt Date: 20100329
  Transmission Date: 20101027
  Serious: Yes (Hospitalization, Other)
  Sender: FDA-Public Use
  Company Number: US-JNJFOC-20100108264

PATIENT
  Sex: Female

DRUGS (1)
  1. LEVAQUIN [Suspect]
     Indication: PNEUMONIA
     Route: 048

REACTIONS (4)
  - PAIN IN EXTREMITY [None]
  - PERIARTHRITIS [None]
  - ROTATOR CUFF SYNDROME [None]
  - TENDON DISORDER [None]
